FAERS Safety Report 22010002 (Version 1)
Quarter: 2023Q1

REPORT INFORMATION
  Report Type: Spontaneous
  Country: US (occurrence: US)
  Receive Date: 20230220
  Receipt Date: 20230220
  Transmission Date: 20230417
  Serious: No
  Sender: FDA-Public Use
  Company Number: US-GLENMARK PHARMACEUTICALS-2022GMK074578

PATIENT

DRUGS (5)
  1. LITHIUM CARBONATE [Suspect]
     Active Substance: LITHIUM CARBONATE
     Indication: Bipolar disorder
     Dosage: 1 DOSAGE FORM, AM (TAKE THE DRUG 2 TIMES DAILY, 1 CAPSULE OF LITHIUM CARBONATE 300MG IN THE MORNING,
     Route: 048
     Dates: start: 2021
  2. LITHIUM CARBONATE [Suspect]
     Active Substance: LITHIUM CARBONATE
     Indication: Bipolar disorder
     Dosage: 1 DOSAGE FORM, HS (TAKE THE DRUG 2 TIMES DAILY, 1 CAPSULE OF LITHIUM CARBONATE 300MG IN THE MORNING,
     Route: 048
     Dates: start: 2021
  3. AMLODIPINE [Concomitant]
     Active Substance: AMLODIPINE BESYLATE
     Indication: Hypertension
     Dosage: 1 DOSAGE FORM, AM
     Route: 048
  4. EZETIMIBE [Concomitant]
     Active Substance: EZETIMIBE
     Indication: Blood cholesterol increased
     Dosage: 1 DOSAGE FORM, AM
     Route: 048
  5. SOLIFENACIN [Concomitant]
     Active Substance: SOLIFENACIN
     Indication: Prostatitis
     Dosage: 1 DOSAGE FORM, AM
     Route: 048
     Dates: start: 2020

REACTIONS (6)
  - Pain in extremity [Unknown]
  - Blood sodium increased [Unknown]
  - Arthralgia [Unknown]
  - Tremor [Unknown]
  - Headache [Unknown]
  - Blood calcium increased [Unknown]
